FAERS Safety Report 21593359 (Version 1)
Quarter: 2022Q4

REPORT INFORMATION
  Report Type: Spontaneous
  Country: DE (occurrence: DE)
  Receive Date: 20221114
  Receipt Date: 20221114
  Transmission Date: 20230112
  Serious: Yes (Hospitalization)
  Sender: FDA-Public Use
  Company Number: None

PATIENT
  Age: 72 Year
  Sex: Male
  Weight: 65 kg

DRUGS (13)
  1. CABAZITAXEL [Suspect]
     Active Substance: CABAZITAXEL
     Indication: Product used for unknown indication
     Dosage: 20 MG/M2, EVERY 3 WEEKS
  2. ETORICOXIB [Suspect]
     Active Substance: ETORICOXIB
     Indication: Product used for unknown indication
     Dosage: 90 MG, 1-0-0-0, TABLETS
  3. CALCIUMACETAT-NEFRO [Concomitant]
     Dosage: 500MG, 1-1-1-0, TABLETS
  4. OXYCODONE HYDROCHLORIDE [Concomitant]
     Active Substance: OXYCODONE HYDROCHLORIDE
     Dosage: 40 MG, 1-0-1-0,  PROLONGED-RELEASE TABLETS
  5. FERROUS GLYCINE SULFATE [Concomitant]
     Active Substance: FERROUS GLYCINE SULFATE
     Dosage: 1-0-0-0, CAPSULE
  6. MIRTAZAPINE [Concomitant]
     Active Substance: MIRTAZAPINE
     Dosage: 15 MG, 0-0-0-1, TABLET
  7. PANTOPRAZOLE [Concomitant]
     Active Substance: PANTOPRAZOLE
     Dosage: 20 MG, 1-0-0-0, TABLET
  8. LIPEGFILGRASTIM [Concomitant]
     Active Substance: LIPEGFILGRASTIM
     Dosage: EVERY 3 WEEKS
  9. PREGABALIN [Concomitant]
     Active Substance: PREGABALIN
     Dosage: 150 MG, 1-0-1-0, CAPSULES
  10. OXYCODONE [Concomitant]
     Active Substance: OXYCODONE
     Dosage: 10 MG, AS REQUIRED, CAPSULE
  11. METAMIZOLE [Concomitant]
     Active Substance: METAMIZOLE
     Dosage: 500 MG/ML, AS REQUIRED, DROPS
  12. PREDNISOLONE [Concomitant]
     Active Substance: PREDNISOLONE
     Dosage: 5 MG, 2-0-0-0, TABLETS
  13. CHOLECALCIFEROL [Concomitant]
     Active Substance: CHOLECALCIFEROL
     Dosage: 20000 IU, ON SATURDAYS, TABLETS

REACTIONS (6)
  - General physical health deterioration [Unknown]
  - Micturition frequency decreased [Unknown]
  - Urinary hesitation [Unknown]
  - Anaemia [Unknown]
  - Fatigue [Unknown]
  - Product prescribing error [Unknown]
